FAERS Safety Report 15663380 (Version 1)
Quarter: 2018Q4

REPORT INFORMATION
  Report Type: Spontaneous
  Country: IE (occurrence: IE)
  Receive Date: 20181128
  Receipt Date: 20181128
  Transmission Date: 20190205
  Serious: Yes (Death, Other)
  Sender: FDA-Public Use
  Company Number: IE-TEVA-2018-IE-979154

PATIENT
  Age: 28 Year
  Sex: Male

DRUGS (5)
  1. ALCOHOL. [Concomitant]
     Active Substance: ALCOHOL
     Dosage: UNK
     Route: 065
     Dates: end: 201405
  2. TRAMADOL. [Suspect]
     Active Substance: TRAMADOL
     Route: 065
     Dates: end: 201405
  3. CANNABIS [Concomitant]
     Active Substance: CANNABIS SATIVA SUBSP. INDICA TOP
     Dosage: UNK
     Route: 065
     Dates: end: 201405
  4. PREGABALIN. [Suspect]
     Active Substance: PREGABALIN
     Dosage: UNK
     Route: 065
     Dates: end: 201405
  5. DIAZEPAM. [Suspect]
     Active Substance: DIAZEPAM
     Dosage: UNK
     Route: 065
     Dates: end: 201405

REACTIONS (7)
  - Aggression [Unknown]
  - Overdose [Fatal]
  - Upper airway obstruction [Fatal]
  - Abnormal behaviour [Unknown]
  - Alcohol poisoning [Fatal]
  - Toxicity to various agents [Fatal]
  - Aspiration [Unknown]

NARRATIVE: CASE EVENT DATE: 20140530
